FAERS Safety Report 23291347 (Version 1)
Quarter: 2023Q4

REPORT INFORMATION
  Report Type: Spontaneous
  Country: US (occurrence: US)
  Receive Date: 20231213
  Receipt Date: 20231213
  Transmission Date: 20240109
  Serious: Yes (Hospitalization, Other)
  Sender: FDA-Public Use
  Company Number: US-ASTELLAS-2023EU005128

PATIENT
  Age: 55 Year
  Sex: Male

DRUGS (7)
  1. TACROLIMUS [Interacting]
     Active Substance: TACROLIMUS
     Indication: Allogenic stem cell transplantation
     Dosage: 1.5 MG, TWICE DAILY (TROUGH CONCENTRATION OF 0.2 NG/ML DRAWN THE DAY PRIOR)
     Route: 048
  2. TACROLIMUS [Interacting]
     Active Substance: TACROLIMUS
     Route: 048
  3. TACROLIMUS [Interacting]
     Active Substance: TACROLIMUS
     Dosage: UNK UNK, TWICE DAILY (1 MG IN THE MORNING AND 0.5 MG AT NIGHT)
     Route: 048
  4. PAXLOVID [Interacting]
     Active Substance: NIRMATRELVIR\RITONAVIR
     Indication: COVID-19
     Dosage: UNK UNK, UNKNOWN FREQ. (6 TOTAL DOSES)
     Route: 065
  5. ISAVUCONAZOLE [Concomitant]
     Active Substance: ISAVUCONAZOLE
     Indication: Antifungal prophylaxis
     Dosage: UNK UNK, UNKNOWN FREQ.
     Route: 065
  6. ISAVUCONAZOLE [Concomitant]
     Active Substance: ISAVUCONAZOLE
     Dosage: 372 MG, ONCE DAILY (WHICH WAS DECREASED BY 50%)
     Route: 065
  7. ISAVUCONAZOLE [Concomitant]
     Active Substance: ISAVUCONAZOLE
     Dosage: UNK UNK, UNKNOWN FREQ. (WAS INCREASED TO THE PRE-NIM/R DOSE)
     Route: 065

REACTIONS (4)
  - Toxicity to various agents [Recovered/Resolved]
  - Labelled drug-drug interaction issue [Unknown]
  - Acute kidney injury [Recovered/Resolved]
  - Off label use [Unknown]
